FAERS Safety Report 6471777-9 (Version None)
Quarter: 2009Q4

REPORT INFORMATION
  Report Type: 
  Country: None (occurrence: None)
  Receive Date: 20091203
  Receipt Date: 20080311
  Transmission Date: 20100525
  Serious: Yes (Hospitalization)
  Sender: FDA-Public Use
  Company Number: US-ELI_LILLY_AND_COMPANY-US200803003834

PATIENT
  Sex: Female

DRUGS (4)
  1. BYETTA [Suspect]
     Indication: TYPE 2 DIABETES MELLITUS
     Dosage: 10 UG, 2/D
     Route: 058
     Dates: start: 20071201, end: 20080201
  2. HUMALOG [Concomitant]
     Dates: start: 20080201
  3. NPH INSULIN [Concomitant]
     Indication: BLOOD GLUCOSE INCREASED
     Dates: start: 20080201
  4. METFORMIN HCL [Concomitant]
     Dates: end: 20080201

REACTIONS (2)
  - BLOOD GLUCOSE INCREASED [None]
  - DRUG EXPOSURE DURING PREGNANCY [None]
